FAERS Safety Report 13061309 (Version 1)
Quarter: 2016Q4

REPORT INFORMATION
  Report Type: Other
  Country: NL (occurrence: NL)
  Receive Date: 20161226
  Receipt Date: 20161226
  Transmission Date: 20170207
  Serious: Yes (Life-Threatening)
  Sender: FDA-Public Use
  Company Number: NL-GLENMARK PHARMACEUTICALS INC, USA.-2016GMK025485

PATIENT

DRUGS (2)
  1. ATOVAQUONE/PROGUANIL HYDROCHLORIDE 250MG/100MG FILMOHULDE TABLETTEN [Suspect]
     Active Substance: ATOVAQUONE\PROGUANIL HYDROCHLORIDE
     Indication: MALARIA PROPHYLAXIS
     Dosage: 1 DF, QD
     Route: 065
     Dates: start: 20160811, end: 20160824
  2. LOCOID [Concomitant]
     Active Substance: HYDROCORTISONE BUTYRATE
     Indication: ECZEMA
     Dosage: 1 DF, QD
     Route: 065
     Dates: start: 20140101

REACTIONS (7)
  - Libido increased [Recovering/Resolving]
  - Impulsive behaviour [Recovering/Resolving]
  - Alopecia [Recovering/Resolving]
  - Mania [Recovering/Resolving]
  - Menstruation irregular [Recovering/Resolving]
  - Abdominal pain [Recovering/Resolving]
  - Diarrhoea [Recovering/Resolving]

NARRATIVE: CASE EVENT DATE: 201608
